FAERS Safety Report 6419740-8 (Version None)
Quarter: 2009Q4

REPORT INFORMATION
  Report Type: 
  Country: None (occurrence: None)
  Receive Date: 20091029
  Receipt Date: 20091022
  Transmission Date: 20100525
  Serious: Yes (Hospitalization)
  Sender: FDA-Public Use
  Company Number: FR-AVENTIS-200913917FR

PATIENT
  Age: 79 Year
  Sex: Female

DRUGS (6)
  1. DAONIL [Suspect]
     Route: 048
     Dates: end: 20090603
  2. SIFROL [Suspect]
     Indication: PARKINSON'S DISEASE
     Route: 048
     Dates: start: 20090528, end: 20090530
  3. GLUCOPHAGE [Suspect]
     Route: 048
     Dates: end: 20090605
  4. ATACAND [Suspect]
     Route: 048
  5. NEXIUM [Suspect]
     Indication: DRUG USE FOR UNKNOWN INDICATION
     Route: 048
     Dates: end: 20090701
  6. LEXOMIL [Concomitant]
     Indication: DRUG USE FOR UNKNOWN INDICATION
     Route: 048

REACTIONS (1)
  - ANAEMIA [None]
